FAERS Safety Report 21093955 (Version 1)
Quarter: 2022Q3

REPORT INFORMATION
  Report Type: Spontaneous
  Country: US (occurrence: None)
  Receive Date: 20220718
  Receipt Date: 20220718
  Transmission Date: 20221027
  Serious: No
  Sender: FDA-Public Use
  Company Number: 2022A247600

PATIENT
  Age: 29210 Day
  Sex: Female

DRUGS (2)
  1. BYDUREON BCISE [Suspect]
     Active Substance: EXENATIDE
     Indication: Diabetes mellitus
     Route: 058
     Dates: start: 20220704
  2. BYDUREON [Concomitant]
     Active Substance: EXENATIDE
     Indication: Diabetes mellitus
     Dosage: UNKNOWN
     Route: 065

REACTIONS (4)
  - Injection site bruising [Not Recovered/Not Resolved]
  - Injection site haemorrhage [Not Recovered/Not Resolved]
  - Device use issue [Not Recovered/Not Resolved]
  - Device delivery system issue [Not Recovered/Not Resolved]

NARRATIVE: CASE EVENT DATE: 20220704
